FAERS Safety Report 18398403 (Version 1)
Quarter: 2020Q4

REPORT INFORMATION
  Report Type: Spontaneous
  Country: PL (occurrence: PL)
  Receive Date: 20201019
  Receipt Date: 20201019
  Transmission Date: 20210114
  Serious: Yes (Other)
  Sender: FDA-Public Use
  Company Number: PL-TEVA-2020-PL-1838906

PATIENT
  Age: 47 Year
  Sex: Female
  Weight: 159 kg

DRUGS (4)
  1. FLUOROURACIL. [Suspect]
     Active Substance: FLUOROURACIL
     Dosage: UNIT DOSE : 1014 MG
     Route: 041
     Dates: start: 20180109, end: 20180403
  2. IRINOTECAN [Suspect]
     Active Substance: IRINOTECAN
     Indication: COLON CANCER
     Dosage: UNIT DOSE : 304 MG
     Route: 042
     Dates: start: 20180109, end: 20180403
  3. CALCIUM FOLINATE [Suspect]
     Active Substance: LEUCOVORIN CALCIUM
     Indication: COLON CANCER
     Dosage: UNIT DOSE : 338 MG
     Route: 042
     Dates: start: 20180109, end: 20180403
  4. FLUOROURACIL. [Suspect]
     Active Substance: FLUOROURACIL
     Indication: COLON CANCER
     Dosage: UNIT DOSE : 676 MG
     Route: 040
     Dates: start: 20180109, end: 20180403

REACTIONS (1)
  - Neutropenia [Unknown]

NARRATIVE: CASE EVENT DATE: 20180417
